FAERS Safety Report 23456774 (Version 2)
Quarter: 2024Q2

REPORT INFORMATION
  Report Type: Spontaneous
  Country: US (occurrence: US)
  Receive Date: 20240130
  Receipt Date: 20240522
  Transmission Date: 20240717
  Serious: Yes (Hospitalization, Other)
  Sender: FDA-Public Use
  Company Number: US-BEH-2024167937

PATIENT
  Age: 64 Year
  Sex: Male

DRUGS (2)
  1. ZEMAIRA [Suspect]
     Active Substance: .ALPHA.1-PROTEINASE INHIBITOR HUMAN
     Indication: Alpha-1 antitrypsin deficiency
     Dosage: 4990 MILLIGRAM, QW
     Route: 042
     Dates: start: 201605
  2. SODIUM CHLORIDE [Concomitant]
     Active Substance: SODIUM CHLORIDE

REACTIONS (7)
  - COVID-19 [Unknown]
  - Pneumonia [Unknown]
  - Product dose omission issue [Unknown]
  - Dizziness [Unknown]
  - Insomnia [Unknown]
  - COVID-19 [Unknown]
  - Alpha-1 antitrypsin deficiency [Unknown]

NARRATIVE: CASE EVENT DATE: 20240201
